FAERS Safety Report 26000029 (Version 1)
Quarter: 2025Q4

REPORT INFORMATION
  Report Type: Spontaneous
  Country: AU (occurrence: AU)
  Receive Date: 20251105
  Receipt Date: 20251105
  Transmission Date: 20260118
  Serious: Yes (Hospitalization, Other)
  Sender: RANBAXY
  Company Number: AU-SUN PHARMACEUTICAL INDUSTRIES LTD-2025R1-534494

PATIENT
  Age: 41 Year
  Sex: Female

DRUGS (2)
  1. LEVOTHYROXINE SODIUM [Suspect]
     Active Substance: LEVOTHYROXINE SODIUM
     Indication: Thyroidectomy
     Dosage: UNK
     Route: 048
     Dates: start: 20240909
  2. AMITRIPTYLINE [Suspect]
     Active Substance: AMITRIPTYLINE
     Indication: Hemiplegic migraine
     Dosage: 25 MILLIGRAM, DAILY
     Route: 065
     Dates: end: 202505

REACTIONS (12)
  - Bladder disorder [Unknown]
  - Confusional state [Unknown]
  - Constipation [Unknown]
  - Decreased appetite [Unknown]
  - Drug ineffective [Recovered/Resolved]
  - Hypothyroidism [Unknown]
  - Somnolence [Unknown]
  - Weight decreased [Unknown]
  - Malaise [Recovered/Resolved]
  - Hypothyroidism [Recovered/Resolved]
  - Hemiplegic migraine [Recovered/Resolved]
  - Condition aggravated [Recovered/Resolved]

NARRATIVE: CASE EVENT DATE: 20240909
